FAERS Safety Report 5677777-0 (Version None)
Quarter: 2008Q1

REPORT INFORMATION
  Report Type: 
  Country: None (occurrence: None)
  Receive Date: 20080318
  Receipt Date: 20080226
  Transmission Date: 20080703
  Serious: Yes (Death)
  Sender: FDA-Public Use
  Company Number: 2008S1003294

PATIENT
  Age: 43 Year
  Sex: Male

DRUGS (8)
  1. BLEOMYCIN SULFATE [Suspect]
     Indication: TESTIS CANCER
     Dosage: 30 ONCE
  2. ETOPOSIDE [Suspect]
     Indication: TESTIS CANCER
     Dosage: 100 MG/M**2
  3. CISPLATIN [Suspect]
     Indication: TESTIS CANCER
     Dosage: 20 MG/M**2
  4. ALPRAZOLAM [Concomitant]
  5. RISPERDAL [Concomitant]
  6. OXAZEPAM [Concomitant]
  7. BIPERIDEN HYDROCHLORIDE TAB [Concomitant]
  8. ANAFRANIL [Concomitant]

REACTIONS (11)
  - DEEP VEIN THROMBOSIS [None]
  - FEBRILE NEUTROPENIA [None]
  - GENERAL PHYSICAL HEALTH DETERIORATION [None]
  - LUNG CONSOLIDATION [None]
  - NERVOUSNESS [None]
  - PLEURAL EFFUSION [None]
  - PNEUMOMEDIASTINUM [None]
  - PULMONARY TOXICITY [None]
  - RESPIRATORY FAILURE [None]
  - SCROTAL ABSCESS [None]
  - SUBCUTANEOUS EMPHYSEMA [None]
